FAERS Safety Report 8776906 (Version 2)
Quarter: 2013Q4

REPORT INFORMATION
  Report Type: Spontaneous
  Country: US (occurrence: US)
  Receive Date: 20120911
  Receipt Date: 20131101
  Transmission Date: 20140711
  Serious: Yes (Hospitalization, Other)
  Sender: FDA-Public Use
  Company Number: US-009507513-1209USA003272

PATIENT
  Age: 63 Year
  Sex: Female

DRUGS (4)
  1. JANUVIA [Suspect]
     Dosage: 100 MG, UNK
     Route: 048
  2. GLIPIZIDE [Concomitant]
  3. LANTUS [Concomitant]
  4. INSULIN [Concomitant]

REACTIONS (1)
  - Pancreatitis [Unknown]
